FAERS Safety Report 17277742 (Version 1)
Quarter: 2020Q1

REPORT INFORMATION
  Report Type: Spontaneous
  Country: US (occurrence: US)
  Receive Date: 20200116
  Receipt Date: 20200116
  Transmission Date: 20200409
  Serious: No
  Sender: FDA-Public Use
  Company Number: None

PATIENT
  Age: 46 Year
  Sex: Female

DRUGS (6)
  1. VITAMIN C [Concomitant]
     Active Substance: ASCORBIC ACID
  2. ASPIRIN 81MG [Concomitant]
     Active Substance: ASPIRIN
  3. NEXPLANON [Suspect]
     Active Substance: ETONOGESTREL
  4. GLIMEPERIDE [Concomitant]
     Active Substance: GLIMEPIRIDE
  5. CRESTOR [Concomitant]
     Active Substance: ROSUVASTATIN CALCIUM
  6. PROBIOTIC [Concomitant]
     Active Substance: PROBIOTICS NOS

REACTIONS (3)
  - Complication associated with device [None]
  - Blood glucose increased [None]
  - Bleeding time prolonged [None]

NARRATIVE: CASE EVENT DATE: 20200107
